FAERS Safety Report 9526212 (Version 3)
Quarter: 2014Q2

REPORT INFORMATION
  Report Type: Spontaneous
  Country: FR (occurrence: FR)
  Receive Date: 20130916
  Receipt Date: 20140422
  Transmission Date: 20141212
  Serious: Yes (Other)
  Sender: FDA-Public Use
  Company Number: FR-PFIZER INC-2013261935

PATIENT
  Age: 66 Year
  Sex: Male

DRUGS (13)
  1. INSPRA [Suspect]
     Dosage: 12.5 MG, 1X/DAY
     Route: 048
     Dates: start: 20130521, end: 20130526
  2. TRIATEC [Suspect]
     Indication: MYOCARDIAL INFARCTION
     Dosage: 1.25 MG, 1X/DAY
     Route: 048
     Dates: start: 20130521, end: 20130524
  3. TRIATEC [Suspect]
     Dosage: 3.75 MG, 1X/DAY
     Route: 048
     Dates: start: 20130525, end: 20130526
  4. VISIPAQUE [Suspect]
     Indication: ARTERIOGRAM CORONARY
     Dosage: 200 ML, 1X/DAY
     Route: 042
     Dates: start: 20130520, end: 20130520
  5. VISIPAQUE [Suspect]
     Dosage: UNK
     Route: 042
     Dates: start: 20130612, end: 20130612
  6. BRILIQUE [Suspect]
     Indication: ACUTE CORONARY SYNDROME
     Dosage: 180 MG, 1X/DAY
     Route: 048
     Dates: start: 20130520, end: 20130526
  7. INEXIUM [Suspect]
     Dosage: 20 MG, 1X/DAY
     Route: 048
     Dates: start: 20130521, end: 20130526
  8. LOVENOX [Suspect]
     Indication: ACUTE CORONARY SYNDROME
     Dosage: UNK
     Route: 058
     Dates: start: 20130520, end: 20130524
  9. LEVETIRACETAM [Concomitant]
  10. KARDEGIC [Concomitant]
  11. TAHOR [Concomitant]
  12. BISOCE [Concomitant]
  13. AMOXICILLIN [Concomitant]

REACTIONS (2)
  - Rash scarlatiniform [Recovered/Resolved]
  - Pruritus [Recovered/Resolved]
